FAERS Safety Report 9242276 (Version 2)
Quarter: 2013Q2

REPORT INFORMATION
  Report Type: Spontaneous
  Country: US (occurrence: US)
  Receive Date: 20130419
  Receipt Date: 20130606
  Transmission Date: 20140414
  Serious: Yes (Other)
  Sender: FDA-Public Use
  Company Number: US-PFIZER INC-2013120319

PATIENT
  Sex: Male

DRUGS (2)
  1. GEODON [Suspect]
     Dosage: 2 DF, UNK
  2. GEODON [Suspect]
     Dosage: 1 DF, UNK

REACTIONS (1)
  - Psychiatric decompensation [Unknown]
